FAERS Safety Report 17220298 (Version 1)
Quarter: 2019Q4

REPORT INFORMATION
  Report Type: Spontaneous
  Country: PT (occurrence: PT)
  Receive Date: 20191231
  Receipt Date: 20191231
  Transmission Date: 20200122
  Serious: Yes (Death)
  Sender: FDA-Public Use
  Company Number: PT-MYLANLABS-2019M1132260

PATIENT
  Age: 84 Year
  Sex: Male

DRUGS (7)
  1. QUETIAPINE. [Concomitant]
     Active Substance: QUETIAPINE
     Dosage: UNK
  2. HALOPERIDOL. [Concomitant]
     Active Substance: HALOPERIDOL
     Dosage: UNK
  3. ALFENTANIL. [Concomitant]
     Active Substance: ALFENTANIL
     Dosage: UNK
  4. PROPOFOL. [Concomitant]
     Active Substance: PROPOFOL
  5. BISOPROLOL [Concomitant]
     Active Substance: BISOPROLOL
     Dosage: UNK
  6. DEXMEDETOMIDINE. [Suspect]
     Active Substance: DEXMEDETOMIDINE
     Indication: SEDATION
     Dosage: POSOLOGIA VARI?VEL, CONSULTAR NARRATIVA
     Route: 042
     Dates: start: 20181218, end: 20181223
  7. ROCURONIUM BROMIDE. [Concomitant]
     Active Substance: ROCURONIUM BROMIDE
     Dosage: UNK

REACTIONS (1)
  - Hyperthermia malignant [Fatal]
